FAERS Safety Report 6748422-8 (Version None)
Quarter: 2010Q2

REPORT INFORMATION
  Report Type: 
  Country: None (occurrence: None)
  Receive Date: 20100601
  Receipt Date: 20100601
  Transmission Date: 20101027
  Serious: No
  Sender: FDA-Public Use
  Company Number: None

PATIENT
  Sex: Female
  Weight: 7.4844 kg

DRUGS (2)
  1. INFANTS' DROPS DYE FREE 80MG PER 0.8ML TYLENOL [Suspect]
     Indication: IRRITABILITY
     Dosage: 0.8ML Q 4 HOURS PRN PO
     Route: 048
     Dates: start: 20100430, end: 20100430
  2. INFANTS' DROPS DYE FREE 80MG PER 0.8ML TYLENOL [Suspect]
     Indication: TEETHING
     Dosage: 0.8ML Q 4 HOURS PRN PO
     Route: 048
     Dates: start: 20100430, end: 20100430

REACTIONS (2)
  - PRODUCT QUALITY ISSUE [None]
  - RASH [None]
